FAERS Safety Report 6411755-9 (Version None)
Quarter: 2009Q4

REPORT INFORMATION
  Report Type: 
  Country: None (occurrence: None)
  Receive Date: 20091023
  Receipt Date: 20091014
  Transmission Date: 20100525
  Serious: Yes (Death)
  Sender: FDA-Public Use
  Company Number: JP-ROCHE-663099

PATIENT
  Age: 12 Year
  Sex: Male

DRUGS (5)
  1. CELLCEPT [Suspect]
     Indication: PROPHYLAXIS AGAINST GRAFT VERSUS HOST DISEASE
     Route: 048
     Dates: start: 20080201
  2. TACROLIMUS [Concomitant]
     Dosage: FORM: ORAL FORMULATION (NOT OTHERWISE SPECIFIED)
     Route: 048
  3. METHOTREXATE [Concomitant]
  4. PREDNISOLONE [Concomitant]
     Dates: start: 20050101
  5. ANABOLIC STEROIDS [Concomitant]
     Dosage: ANABOLIC STEROIDS AND PREPARATIONS
     Dates: start: 20050101

REACTIONS (1)
  - PRECURSOR T-LYMPHOBLASTIC LYMPHOMA/LEUKAEMIA [None]
